FAERS Safety Report 15481497 (Version 1)
Quarter: 2018Q4

REPORT INFORMATION
  Report Type: Spontaneous
  Country: FR (occurrence: FR)
  Receive Date: 20181010
  Receipt Date: 20181010
  Transmission Date: 20190205
  Serious: Yes (Hospitalization, Other)
  Sender: FDA-Public Use
  Company Number: FR-AUROBINDO-AUR-APL-2017-47586

PATIENT
  Age: 13 Year
  Sex: Male

DRUGS (31)
  1. DAUNORUBICIN [Suspect]
     Active Substance: DAUNORUBICIN
     Dosage: 52.5 MG, QD
     Route: 042
     Dates: start: 20171006
  2. CYCLOPHOSPHAMIDE. [Suspect]
     Active Substance: CYCLOPHOSPHAMIDE
     Indication: ACUTE LYMPHOCYTIC LEUKAEMIA
     Dosage: 1960 MG, UNK
     Route: 042
     Dates: start: 20180302
  3. PREDNISONE. [Suspect]
     Active Substance: PREDNISONE
     Dosage: 110 MG, QD
     Route: 048
     Dates: start: 20170915
  4. CYTARABINE. [Suspect]
     Active Substance: CYTARABINE
     Dosage: 30 MG, QD
     Route: 037
     Dates: start: 20170920, end: 20171002
  5. VINCRISTIN [Suspect]
     Active Substance: VINCRISTINE
     Dosage: 2 MG, ONCE A DAY
     Route: 042
     Dates: start: 20170915, end: 20171006
  6. VINCRISTIN [Suspect]
     Active Substance: VINCRISTINE
     Dosage: 2 UNK
     Route: 042
     Dates: start: 20171006
  7. HYDROCORTISON                      /00028601/ [Suspect]
     Active Substance: HYDROCORTISONE
     Indication: ACUTE LYMPHOCYTIC LEUKAEMIA
     Dosage: 15 UNK
     Route: 037
     Dates: start: 20170122, end: 20170202
  8. METHOTREXATE. [Suspect]
     Active Substance: METHOTREXATE
     Dosage: 15 MG, QD
     Route: 037
     Dates: start: 20171002
  9. CYTARABINE. [Suspect]
     Active Substance: CYTARABINE
     Dosage: 30 MG, QD
     Route: 037
     Dates: start: 20171002
  10. PEGASPARGASE [Suspect]
     Active Substance: PEGASPARGASE
     Indication: ACUTE LYMPHOCYTIC LEUKAEMIA
     Dosage: 1800 IU, UNK
     Route: 042
     Dates: start: 20170121
  11. METHOTREXATE. [Suspect]
     Active Substance: METHOTREXATE
     Dosage: 15 MG, QD
     Route: 037
     Dates: start: 20170920, end: 20171002
  12. CERUBIDINE [Suspect]
     Active Substance: DAUNORUBICIN HYDROCHLORIDE
     Indication: ACUTE LYMPHOCYTIC LEUKAEMIA
     Dosage: 77.5 MG, 1X/DAY:QD
     Route: 042
     Dates: start: 20180301
  13. ARACYTINE [Suspect]
     Active Substance: CYTARABINE
     Indication: ACUTE LYMPHOCYTIC LEUKAEMIA
     Dosage: 30 MG, 1X/DAY:QD
     Route: 037
     Dates: start: 20180306, end: 20180319
  14. BACTRIM [Concomitant]
     Active Substance: SULFAMETHOXAZOLE\TRIMETHOPRIM
     Indication: INFECTION
     Dosage: UNK
     Route: 065
  15. VINCRISTIN [Suspect]
     Active Substance: VINCRISTINE
     Indication: ACUTE LYMPHOCYTIC LEUKAEMIA
     Dosage: 1.1 MILLIGRAM
     Route: 042
     Dates: start: 20170117, end: 20170207
  16. HYDROCORTISON                      /00028601/ [Suspect]
     Active Substance: HYDROCORTISONE
     Dosage: 15 MG, QD
     Route: 037
     Dates: start: 20171002
  17. PEGASPARGASE [Suspect]
     Active Substance: PEGASPARGASE
     Dosage: 2175 IU, QD
     Route: 042
     Dates: start: 20171003
  18. ORACILLINE                         /00001801/ [Concomitant]
     Active Substance: PENICILLIN V
     Indication: SPLENOMEGALY
     Dosage: UNK
     Route: 065
  19. LOVENOX [Concomitant]
     Active Substance: ENOXAPARIN SODIUM
     Indication: SPLENOMEGALY
     Dosage: UNK
     Route: 065
  20. PEGASPARGASE [Suspect]
     Active Substance: PEGASPARGASE
     Dosage: 2175 IU, QD
     Route: 042
     Dates: start: 20170919, end: 20171003
  21. DAUNORUBICIN [Suspect]
     Active Substance: DAUNORUBICIN
     Indication: ACUTE LYMPHOCYTIC LEUKAEMIA
     Dosage: 22 MG, UNK
     Route: 042
     Dates: start: 20170117, end: 20170207
  22. METHOTREXATE. [Suspect]
     Active Substance: METHOTREXATE
     Indication: ACUTE LYMPHOCYTIC LEUKAEMIA
     Dosage: 12 MG,
     Route: 037
     Dates: start: 20170110, end: 20170202
  23. CYTARABINE. [Suspect]
     Active Substance: CYTARABINE
     Indication: ACUTE LYMPHOCYTIC LEUKAEMIA
     Dosage: 30 MG, QD
     Route: 037
     Dates: start: 20170122, end: 20170202
  24. HYDROCORTISON                      /00028601/ [Suspect]
     Active Substance: HYDROCORTISONE
     Dosage: 15 MG, ONCE A DAY
     Route: 037
     Dates: start: 20170920, end: 20171002
  25. PREDNISOLONE. [Suspect]
     Active Substance: PREDNISOLONE
     Indication: ACUTE LYMPHOCYTIC LEUKAEMIA
     Dosage: 110 MG, ONCE A DAY
     Route: 048
     Dates: start: 20170915, end: 20171006
  26. PREDNISONE. [Suspect]
     Active Substance: PREDNISONE
     Indication: ACUTE LYMPHOCYTIC LEUKAEMIA
     Dosage: 45 MG, UNK
     Route: 048
     Dates: start: 20170117, end: 20170213
  27. PREDNISONE. [Suspect]
     Active Substance: PREDNISONE
     Dosage: 110 MG, QD
     Route: 048
     Dates: start: 20171006
  28. DAUNORUBICIN [Suspect]
     Active Substance: DAUNORUBICIN
     Indication: ACUTE MYELOID LEUKAEMIA
     Dosage: 52.5 MG, 1X/DAY:QD
     Route: 042
     Dates: start: 20170915, end: 20171006
  29. PREDNISOLONE. [Suspect]
     Active Substance: PREDNISOLONE
     Indication: ACUTE LYMPHOCYTIC LEUKAEMIA
     Dosage: 120 MG, 1X/DAY:QD
     Route: 048
     Dates: start: 20180301
  30. PEGASPARGASE [Suspect]
     Active Substance: PEGASPARGASE
     Dosage: 4800 IU, 1X/DAY:QD
     Route: 042
     Dates: start: 20180305, end: 20180319
  31. METHOTREXATE. [Suspect]
     Active Substance: METHOTREXATE
     Dosage: 15 MG, 1X/DAY:QD
     Route: 037
     Dates: start: 20180223, end: 20180319

REACTIONS (4)
  - Potentiating drug interaction [Recovered/Resolved]
  - Hypofibrinogenaemia [Recovered/Resolved]
  - Prothrombin level abnormal [Recovered/Resolved]
  - International normalised ratio increased [Recovered/Resolved]

NARRATIVE: CASE EVENT DATE: 20170202
